FAERS Safety Report 9253750 (Version 1)
Quarter: 2013Q1

REPORT INFORMATION
  Report Type: Spontaneous
  Country: US (occurrence: None)
  Receive Date: 20121203
  Receipt Date: 20121203
  Transmission Date: 20140127
  Serious: Yes (Life-Threatening, Hospitalization)
  Sender: FDA-Public Use
  Company Number: 1210USA002135

PATIENT
  Age: 44 Year
  Sex: Female

DRUGS (1)
  1. NUVARING (ETONOGESTREL (+) ETHINYL ESTRADIOL) VAGINAL RING [Suspect]
     Indication: CONTRACEPTION
     Dosage: 0.12/0.015/24 MG, VAGINAL
     Dates: start: 201110, end: 201206

REACTIONS (2)
  - Pulmonary embolism [None]
  - Peripheral embolism [None]
